FAERS Safety Report 4925855-3 (Version None)
Quarter: 2006Q1

REPORT INFORMATION
  Report Type: 
  Country: None (occurrence: None)
  Receive Date: 20060228
  Receipt Date: 20050331
  Transmission Date: 20060701
  Serious: No
  Sender: FDA-Public Use
  Company Number: US-GLAXOSMITHKLINE-A0552318A

PATIENT
  Age: 40 Year
  Sex: Female

DRUGS (3)
  1. LAMICTAL [Suspect]
     Indication: BIPOLAR DISORDER
     Dosage: 200MG AT NIGHT
     Route: 048
     Dates: start: 20041228
  2. EFFEXOR XR [Concomitant]
     Indication: DEPRESSION
     Dosage: 75MG PER DAY
     Dates: start: 20030101
  3. ESKALITH CR [Concomitant]
     Dates: start: 19950101

REACTIONS (2)
  - MYALGIA [None]
  - SHOULDER PAIN [None]
